FAERS Safety Report 17521152 (Version 1)
Quarter: 2020Q1

REPORT INFORMATION
  Report Type: Spontaneous
  Country: US (occurrence: US)
  Receive Date: 20200310
  Receipt Date: 20200310
  Transmission Date: 20200409
  Serious: Yes (Hospitalization, Other)
  Sender: FDA-Public Use
  Company Number: NVSC2020US064829

PATIENT
  Sex: Male

DRUGS (1)
  1. ENTRESTO [Suspect]
     Active Substance: SACUBITRIL\VALSARTAN
     Indication: PRODUCT USED FOR UNKNOWN INDICATION
     Dosage: UNK UNK, UNKNOWN
     Route: 048

REACTIONS (5)
  - Hyponatraemia [Recovered/Resolved]
  - Cardiac failure congestive [Recovered/Resolved]
  - Cardiorenal syndrome [Recovered/Resolved]
  - Fluid overload [Recovered/Resolved]
  - Acute kidney injury [Recovered/Resolved]
